FAERS Safety Report 6597093-2 (Version None)
Quarter: 2010Q1

REPORT INFORMATION
  Report Type: 
  Country: None (occurrence: None)
  Receive Date: 20100223
  Receipt Date: 20100119
  Transmission Date: 20100710
  Serious: Yes (Other)
  Sender: FDA-Public Use
  Company Number: CA-PFIZER INC-2010018562

PATIENT
  Age: 49 Year
  Sex: Male

DRUGS (2)
  1. CHAMPIX [Suspect]
     Dosage: 1 MG, 2X/DAY
  2. ALCOHOL [Concomitant]
     Dosage: 10 DRINKS

REACTIONS (3)
  - AGITATION [None]
  - PHYSICAL ASSAULT [None]
  - RESTLESSNESS [None]
